FAERS Safety Report 11005836 (Version 3)
Quarter: 2015Q3

REPORT INFORMATION
  Report Type: Spontaneous
  Country: US (occurrence: US)
  Receive Date: 20150409
  Receipt Date: 20150717
  Transmission Date: 20151125
  Serious: Yes (Death, Hospitalization, Other)
  Sender: FDA-Public Use
  Company Number: US-009507513-1504USA003772

PATIENT
  Sex: Female
  Weight: 46.71 kg

DRUGS (3)
  1. COUMADIN [Concomitant]
     Active Substance: WARFARIN SODIUM
     Indication: THROMBOSIS
     Dosage: 2 MG, QD
     Route: 048
     Dates: start: 1995
  2. COUMADIN [Concomitant]
     Active Substance: WARFARIN SODIUM
     Indication: PULMONARY EMBOLISM
  3. JANUVIA [Suspect]
     Active Substance: SITAGLIPTIN PHOSPHATE
     Indication: TYPE 2 DIABETES MELLITUS
     Dosage: 100 MG, QD
     Route: 048
     Dates: start: 20080807, end: 20090706

REACTIONS (64)
  - Cellulitis streptococcal [Unknown]
  - Hypoglycaemia [Unknown]
  - Shoulder operation [Unknown]
  - Gravitational oedema [Unknown]
  - Hypercoagulation [Unknown]
  - Rectal haemorrhage [Unknown]
  - Intestinal perforation [Fatal]
  - Colectomy [Unknown]
  - Hyperglycaemia [Unknown]
  - Pancytopenia [Recovered/Resolved]
  - Tachycardia [Unknown]
  - Coronary artery disease [Unknown]
  - Neuralgia [Unknown]
  - Gastrointestinal haemorrhage [Unknown]
  - Kidney fibrosis [Unknown]
  - Renal cyst [Unknown]
  - Bile duct stent insertion [Unknown]
  - Drain placement [Unknown]
  - Intestinal ischaemia [Fatal]
  - Cerebrovascular accident [Unknown]
  - Short-bowel syndrome [Unknown]
  - Pulmonary hypertension [Unknown]
  - Liver abscess [Unknown]
  - Hyperbilirubinaemia [Unknown]
  - Anaemia [Recovering/Resolving]
  - Pancreatitis [Unknown]
  - Varicose veins pelvic [Unknown]
  - Osteosclerosis [Unknown]
  - Non-cardiac chest pain [Unknown]
  - Cardiac failure congestive [Unknown]
  - Explorative laparotomy [Unknown]
  - Anaemia [Unknown]
  - Headache [Unknown]
  - Bone disorder [Unknown]
  - Coronary arterial stent insertion [Unknown]
  - Device occlusion [Unknown]
  - Varices oesophageal [Unknown]
  - Biliary drainage [Unknown]
  - Biliary dilatation [Unknown]
  - Pancreatic duct dilatation [Unknown]
  - Chronic obstructive pulmonary disease [Not Recovered/Not Resolved]
  - Malnutrition [Unknown]
  - Intestinal adhesion lysis [Unknown]
  - Asthenia [Unknown]
  - Orthostatic hypotension [Unknown]
  - Hyperphosphataemia [Unknown]
  - Oedema [Unknown]
  - Malnutrition [Unknown]
  - Appendicectomy [Unknown]
  - Deep vein thrombosis [Unknown]
  - Vena cava filter insertion [Unknown]
  - Hypertension [Unknown]
  - Asthma [Unknown]
  - Adenocarcinoma pancreas [Fatal]
  - Pancreatic mass [Unknown]
  - Hepatic candidiasis [Unknown]
  - Septic shock [Fatal]
  - Small intestinal resection [Unknown]
  - Coronary artery bypass [Unknown]
  - Metastases to adrenals [Unknown]
  - Biopsy pancreas [Unknown]
  - Neutropenia [Recovered/Resolved]
  - Vision blurred [Unknown]
  - Fluid retention [Unknown]

NARRATIVE: CASE EVENT DATE: 2009
